FAERS Safety Report 4660071-4 (Version None)
Quarter: 2005Q2

REPORT INFORMATION
  Report Type: 
  Country: None (occurrence: None)
  Receive Date: 20050512
  Receipt Date: 20050119
  Transmission Date: 20051028
  Serious: No
  Sender: FDA-Public Use
  Company Number: US-GLAXOSMITHKLINE-A0541333A

PATIENT
  Age: 49 Year
  Sex: Male

DRUGS (2)
  1. RELAFEN [Suspect]
     Dosage: 2000MG THREE TIMES PER DAY
     Route: 048
     Dates: start: 20040401, end: 20040401
  2. NO CONCURRENT MEDICATION [Concomitant]

REACTIONS (7)
  - ABDOMINAL PAIN UPPER [None]
  - DIARRHOEA [None]
  - MEDICATION ERROR [None]
  - NAUSEA [None]
  - PHOTOPHOBIA [None]
  - TREMOR [None]
  - VISION BLURRED [None]
